FAERS Safety Report 21292282 (Version 1)
Quarter: 2022Q3

REPORT INFORMATION
  Report Type: Spontaneous
  Country: US (occurrence: US)
  Receive Date: 20220905
  Receipt Date: 20220905
  Transmission Date: 20221027
  Serious: Yes (Hospitalization)
  Sender: FDA-Public Use
  Company Number: US-APOTEX-2022AP012192

PATIENT
  Age: 75 Year
  Sex: Male

DRUGS (4)
  1. GEMCITABINE [Suspect]
     Active Substance: GEMCITABINE
     Indication: Transitional cell carcinoma recurrent
     Dosage: UNK
     Route: 065
  2. GEMCITABINE [Suspect]
     Active Substance: GEMCITABINE
     Indication: Metastatic neoplasm
  3. CISPLATIN [Concomitant]
     Active Substance: CISPLATIN
     Indication: Transitional cell carcinoma recurrent
     Dosage: UNK
     Route: 065
  4. CISPLATIN [Concomitant]
     Active Substance: CISPLATIN
     Indication: Metastatic neoplasm

REACTIONS (1)
  - Pneumonitis [Recovering/Resolving]
